FAERS Safety Report 21057573 (Version 1)
Quarter: 2022Q3

REPORT INFORMATION
  Report Type: Spontaneous
  Country: US (occurrence: None)
  Receive Date: 20220707
  Receipt Date: 20220707
  Transmission Date: 20221026
  Serious: Yes (Hospitalization)
  Sender: FDA-Public Use
  Company Number: None

PATIENT
  Sex: Female

DRUGS (1)
  1. SUNITINIB MALATE [Suspect]
     Active Substance: SUNITINIB MALATE
     Indication: Malignant connective tissue neoplasm
     Dosage: 25MG DAILY ORAL
     Route: 048
     Dates: start: 20211011

REACTIONS (1)
  - Full blood count decreased [None]
